FAERS Safety Report 5132581-7 (Version None)
Quarter: 2006Q4

REPORT INFORMATION
  Report Type: 
  Country: None (occurrence: None)
  Receive Date: 20061023
  Receipt Date: 20061013
  Transmission Date: 20070319
  Serious: Yes (Other)
  Sender: FDA-Public Use
  Company Number: 2006UW19912

PATIENT
  Age: 56 Year
  Sex: Female
  Weight: 81.2 kg

DRUGS (2)
  1. ARIMIDEX [Suspect]
     Indication: BREAST CANCER
     Route: 048
     Dates: start: 20060901
  2. PLENDIL [Concomitant]
     Route: 048

REACTIONS (5)
  - BONE PAIN [None]
  - CRYING [None]
  - DYSURIA [None]
  - INSOMNIA [None]
  - VAGINAL PAIN [None]
